FAERS Safety Report 11061276 (Version 1)
Quarter: 2015Q2

REPORT INFORMATION
  Report Type: Spontaneous
  Country: US (occurrence: US)
  Receive Date: 20150424
  Receipt Date: 20150424
  Transmission Date: 20150821
  Serious: No
  Sender: FDA-Public Use
  Company Number: US-TEVA-479887USA

PATIENT
  Sex: Male

DRUGS (1)
  1. FAMOTIDINE. [Suspect]
     Active Substance: FAMOTIDINE

REACTIONS (4)
  - Peripheral swelling [Unknown]
  - Swelling [Unknown]
  - Gout [Unknown]
  - Pain in extremity [Unknown]
